FAERS Safety Report 16448966 (Version 1)
Quarter: 2019Q2

REPORT INFORMATION
  Report Type: Spontaneous
  Country: FR (occurrence: FR)
  Receive Date: 20190619
  Receipt Date: 20190619
  Transmission Date: 20190711
  Serious: Yes (Hospitalization, Other)
  Sender: FDA-Public Use
  Company Number: FR-AUROBINDO-AUR-APL-2019-034055

PATIENT

DRUGS (3)
  1. SPASFON LYOC [Suspect]
     Active Substance: PHLOROGLUCINOL
     Indication: GASTROENTERITIS
     Dosage: UNK
     Route: 048
     Dates: end: 20190520
  2. SMECTA [Suspect]
     Active Substance: MONTMORILLONITE
     Indication: GASTROENTERITIS
     Dosage: UNK
     Route: 048
     Dates: start: 20190519, end: 20190519
  3. PARACETAMOL [Suspect]
     Active Substance: ACETAMINOPHEN
     Indication: GASTROENTERITIS
     Dosage: UNK
     Route: 048
     Dates: end: 20190520

REACTIONS (1)
  - Anaphylactic shock [Recovered/Resolved]

NARRATIVE: CASE EVENT DATE: 20190520
